FAERS Safety Report 18874775 (Version 1)
Quarter: 2021Q1

REPORT INFORMATION
  Report Type: Report from Study
  Country: US (occurrence: US)
  Receive Date: 20210211
  Receipt Date: 20210211
  Transmission Date: 20210420
  Serious: Yes (Death, Other)
  Sender: FDA-Public Use
  Company Number: US-SUN PHARMACEUTICAL INDUSTRIES LTD-2021R1-279566

PATIENT
  Age: 87 Year
  Sex: Female

DRUGS (1)
  1. VERAPAMIL [Suspect]
     Active Substance: VERAPAMIL HYDROCHLORIDE
     Indication: PRODUCT USED FOR UNKNOWN INDICATION
     Route: 065

REACTIONS (6)
  - Atrioventricular block [Fatal]
  - Acute kidney injury [Fatal]
  - Electrocardiogram QT interval [Fatal]
  - Hypotension [Fatal]
  - Bradycardia [Fatal]
  - Acute lung injury [Fatal]
